FAERS Safety Report 9276476 (Version 1)
Quarter: 2012Q4

REPORT INFORMATION
  Report Type: Spontaneous
  Country: IN (occurrence: None)
  Receive Date: 20121109
  Receipt Date: 20121109
  Transmission Date: 20130627
  Serious: Yes (Death, Other)
  Sender: FDA-Public Use
  Company Number: 2012S1000328

PATIENT
  Age: 54 Year
  Sex: Male

DRUGS (1)
  1. CUBICIN [Suspect]
     Indication: ENTEROCOCCAL INFECTION
     Dosage: 4 MG ; UNK ; UNK
     Dates: start: 20120328

REACTIONS (5)
  - Cardiopulmonary failure [None]
  - Septic shock [None]
  - Bacterial sepsis [None]
  - Multi-organ failure [None]
  - Liver disorder [None]
